FAERS Safety Report 6636289-8 (Version None)
Quarter: 2010Q1

REPORT INFORMATION
  Report Type: 
  Country: None (occurrence: None)
  Receive Date: 20100316
  Receipt Date: 20100312
  Transmission Date: 20100710
  Serious: Yes (Life-Threatening)
  Sender: FDA-Public Use
  Company Number: NO-ASTRAZENECA-2010SE05499

PATIENT
  Age: 68 Year
  Sex: Male

DRUGS (8)
  1. ATACAND [Suspect]
     Route: 048
  2. PROPOFOL [Interacting]
     Route: 042
     Dates: start: 20100111, end: 20100111
  3. PROPOFOL [Interacting]
     Route: 042
     Dates: start: 20100121, end: 20100121
  4. CISATRACURIUM BESYLATE [Interacting]
     Indication: ENDOTRACHEAL INTUBATION
     Dates: start: 20100121, end: 20100121
  5. SAROTEX [Concomitant]
     Route: 048
  6. SIMVASTATIN RATIOPHARM [Concomitant]
     Route: 048
  7. FENTANYL [Concomitant]
     Indication: STUPOR
     Dates: start: 20100121, end: 20100121
  8. SELO-ZOK [Concomitant]
     Route: 048

REACTIONS (2)
  - DRUG INTERACTION [None]
  - HYPOTENSION [None]
